FAERS Safety Report 10609225 (Version 2)
Quarter: 2014Q4

REPORT INFORMATION
  Report Type: Spontaneous
  Country: ES (occurrence: ES)
  Receive Date: 20141126
  Receipt Date: 20141126
  Transmission Date: 20150529
  Serious: Yes (Other)
  Sender: FDA-Public Use
  Company Number: ES-AMGEN-ESPSP2014025391

PATIENT
  Age: 56 Year
  Sex: Female

DRUGS (3)
  1. ENBREL [Suspect]
     Active Substance: ETANERCEPT
     Indication: ANKYLOSING SPONDYLITIS
     Dosage: 50 MG, ONCE WEEKLY
     Route: 058
     Dates: start: 20131220, end: 2014
  2. CORTISONE [Concomitant]
     Active Substance: CORTISONE\HYDROCORTISONE
     Indication: ANKYLOSING SPONDYLITIS
     Dosage: 1 TABLET, EVERY 24H
  3. ACOXXEL [Concomitant]
     Active Substance: ETORICOXIB
     Indication: ANTIINFLAMMATORY THERAPY
     Dosage: 1 TABLET, EVERY 24H

REACTIONS (4)
  - Ankylosing spondylitis [Recovered/Resolved]
  - Insomnia [Unknown]
  - Injection site haematoma [Recovered/Resolved]
  - Pain [Recovered/Resolved]
